FAERS Safety Report 23188563 (Version 1)
Quarter: 2023Q4

REPORT INFORMATION
  Report Type: Spontaneous
  Country: US (occurrence: US)
  Receive Date: 20231115
  Receipt Date: 20231115
  Transmission Date: 20240109
  Serious: No
  Sender: FDA-Public Use
  Company Number: US-PFIZER INC-PV202300088644

PATIENT
  Age: 76 Year
  Sex: Female
  Weight: 48.8 kg

DRUGS (5)
  1. IBRANCE [Suspect]
     Active Substance: PALBOCICLIB
     Indication: Breast cancer metastatic
     Dosage: UNK
     Dates: start: 202203
  2. IBRANCE [Suspect]
     Active Substance: PALBOCICLIB
     Dosage: WITH FOOD FOR 21 DAYS FOLLOWED BY 7 DAYS OFF
     Route: 048
  3. ARIMIDEX [Concomitant]
     Active Substance: ANASTROZOLE
     Dosage: UNK
     Dates: start: 202203
  4. ZOMETA [Concomitant]
     Active Substance: ZOLEDRONIC ACID
  5. XGEVA [Concomitant]
     Active Substance: DENOSUMAB

REACTIONS (2)
  - Fatigue [Unknown]
  - Neoplasm progression [Unknown]

NARRATIVE: CASE EVENT DATE: 20230101
